FAERS Safety Report 7944809-6 (Version None)
Quarter: 2011Q4

REPORT INFORMATION
  Report Type: 
  Country: None (occurrence: None)
  Receive Date: 20111129
  Receipt Date: 20111124
  Transmission Date: 20120403
  Serious: Yes (Life-Threatening, Hospitalization)
  Sender: FDA-Public Use
  Company Number: IT-BRISTOL-MYERS SQUIBB COMPANY-16173957

PATIENT
  Age: 22 Year
  Sex: Male

DRUGS (5)
  1. LORAZEPAM [Suspect]
     Dosage: 1 DF = 20 UNITS
     Dates: start: 20110907
  2. ABILIFY [Suspect]
     Dosage: 1 DF = 4 UNITS
     Dates: start: 20110907
  3. DEPAKENE [Suspect]
     Dosage: 1 DF= 16 UNITS DOSE: 300 MG
     Dates: start: 20110907
  4. FLURAZEPAM [Suspect]
     Dosage: 1 DF = 20 UNITS
     Dates: start: 20110907
  5. SEROQUEL [Suspect]
     Dosage: 1 DF = 26 UNITS
     Dates: start: 20110907

REACTIONS (3)
  - SUICIDE ATTEMPT [None]
  - COMA [None]
  - MULTIPLE DRUG OVERDOSE [None]
